FAERS Safety Report 9886560 (Version 1)
Quarter: 2014Q1

REPORT INFORMATION
  Report Type: Spontaneous
  Country: US (occurrence: US)
  Receive Date: 20140210
  Receipt Date: 20140210
  Transmission Date: 20141002
  Serious: No
  Sender: FDA-Public Use
  Company Number: US-BAYER-2014-019364

PATIENT
  Age: 69 Year
  Sex: Female
  Weight: 82 kg

DRUGS (9)
  1. ALEVE CAPLET [Suspect]
     Dosage: 2 DF, PRN
     Route: 048
     Dates: start: 201401
  2. ALEVE GELCAPS [Suspect]
     Dosage: 2 DF, PRN
     Route: 048
     Dates: start: 201401
  3. BAYER ASPIRIN REGIMEN ADULT LOW STRENGTH [Concomitant]
     Dosage: 1 DF, QD
     Route: 048
  4. INSULIN [Concomitant]
  5. FISH OIL [Concomitant]
  6. VITAMIN D [Concomitant]
  7. GLYBURIDE [Concomitant]
  8. B12 [Concomitant]
  9. VICTOZA [Concomitant]

REACTIONS (1)
  - Extra dose administered [None]
